FAERS Safety Report 4437335-2 (Version None)
Quarter: 2004Q3

REPORT INFORMATION
  Report Type: 
  Country: None (occurrence: None)
  Receive Date: 20040727
  Receipt Date: 20040504
  Transmission Date: 20050211
  Serious: Yes (Hospitalization)
  Sender: FDA-Public Use
  Company Number: 04P-163-0259590-00

PATIENT
  Age: 55 Year
  Sex: Female

DRUGS (2)
  1. SYNTHROID [Suspect]
     Indication: HYPOTHYROIDISM
     Dosage: PER ORAL
     Route: 048
     Dates: start: 20040301
  2. HYDROCORTISONE [Concomitant]

REACTIONS (2)
  - ABDOMINAL PAIN [None]
  - DRUG INTOLERANCE [None]
